FAERS Safety Report 18123778 (Version 1)
Quarter: 2020Q3

REPORT INFORMATION
  Report Type: Spontaneous
  Country: US (occurrence: US)
  Receive Date: 20200806
  Receipt Date: 20200806
  Transmission Date: 20201103
  Serious: No
  Sender: FDA-Public Use
  Company Number: None

PATIENT
  Age: 55 Year
  Sex: Male

DRUGS (1)
  1. SYMFI [Suspect]
     Active Substance: EFAVIRENZ\LAMIVUDINE\TENOFOVIR DISOPROXIL FUMARATE
     Route: 047
     Dates: start: 201908, end: 202008

REACTIONS (2)
  - Neuropathy peripheral [None]
  - Contusion [None]

NARRATIVE: CASE EVENT DATE: 20191001
